FAERS Safety Report 8034240-X (Version None)
Quarter: 2012Q1

REPORT INFORMATION
  Report Type: 
  Country: None (occurrence: None)
  Receive Date: 20120110
  Receipt Date: 20120109
  Transmission Date: 20120608
  Serious: Yes (Death, Other)
  Sender: FDA-Public Use
  Company Number: DE-ROCHE-1015386

PATIENT
  Age: 53 Year
  Sex: Male

DRUGS (1)
  1. HERCEPTIN [Suspect]
     Indication: GASTRIC CANCER

REACTIONS (3)
  - PULMONARY FIBROSIS [None]
  - PULMONARY EMBOLISM [None]
  - BUNDLE BRANCH BLOCK RIGHT [None]
